FAERS Safety Report 19739335 (Version 1)
Quarter: 2021Q3

REPORT INFORMATION
  Report Type: Spontaneous
  Country: US (occurrence: US)
  Receive Date: 20210823
  Receipt Date: 20210823
  Transmission Date: 20211014
  Serious: Yes (Other)
  Sender: FDA-Public Use
  Company Number: US-MALLINCKRODT PHARMACEUTICALS-T202103745

PATIENT
  Sex: Female
  Weight: 67 kg

DRUGS (2)
  1. UVADEX [Suspect]
     Active Substance: METHOXSALEN
     Indication: HEART TRANSPLANT REJECTION
     Dosage: UNK (EXTRACORPOREAL)
     Route: 050
  2. ACDA [Concomitant]
     Indication: ANTICOAGULANT THERAPY
     Dosage: UNK (RATIO OF 14:1)
     Route: 065

REACTIONS (3)
  - Thrombosis in device [Recovered/Resolved]
  - Thrombosis in device [Recovered/Resolved]
  - Product use in unapproved indication [Not Recovered/Not Resolved]

NARRATIVE: CASE EVENT DATE: 20210808
